FAERS Safety Report 15201216 (Version 2)
Quarter: 2018Q4

REPORT INFORMATION
  Report Type: Spontaneous
  Country: US (occurrence: US)
  Receive Date: 20180726
  Receipt Date: 20181105
  Transmission Date: 20190204
  Serious: No
  Sender: FDA-Public Use
  Company Number: US-PFIZER INC-2018302328

PATIENT
  Sex: Female

DRUGS (1)
  1. LYRICA [Suspect]
     Active Substance: PREGABALIN
     Dosage: UNK

REACTIONS (6)
  - Fibromyalgia [Unknown]
  - Pain [Unknown]
  - Withdrawal syndrome [Unknown]
  - Gait disturbance [Unknown]
  - Spinal osteoarthritis [Unknown]
  - Stress [Unknown]
